FAERS Safety Report 19734821 (Version 1)
Quarter: 2021Q3

REPORT INFORMATION
  Report Type: Report from Study
  Country: US (occurrence: US)
  Receive Date: 20210823
  Receipt Date: 20210823
  Transmission Date: 20211014
  Serious: Yes (Other)
  Sender: FDA-Public Use
  Company Number: US-MYLANLABS-2021M1053018

PATIENT

DRUGS (2)
  1. SAPANISERTIB [Suspect]
     Active Substance: SAPANISERTIB
     Indication: NEOPLASM MALIGNANT
     Dosage: 3 MILLIGRAM, QD
     Route: 065
  2. METFORMIN [Suspect]
     Active Substance: METFORMIN HYDROCHLORIDE
     Indication: NEOPLASM MALIGNANT
     Dosage: 1000 MILLIGRAM, QD
     Route: 065

REACTIONS (2)
  - Diarrhoea [Unknown]
  - Off label use [Unknown]
